FAERS Safety Report 7423753-7 (Version None)
Quarter: 2011Q2

REPORT INFORMATION
  Report Type: 
  Country: None (occurrence: None)
  Receive Date: 20110419
  Receipt Date: 20110406
  Transmission Date: 20111010
  Serious: Yes (Other)
  Sender: FDA-Public Use
  Company Number: FR-ALEXION PHARMACEUTICALS INC.-A201100517

PATIENT
  Sex: Female
  Weight: 2.08 kg

DRUGS (1)
  1. SOLIRIS [Suspect]
     Indication: DRUG EXPOSURE DURING PREGNANCY
     Route: 064

REACTIONS (4)
  - APGAR SCORE LOW [None]
  - PREMATURE BABY [None]
  - FOETAL CARDIAC DISORDER [None]
  - MATERNAL DRUGS AFFECTING FOETUS [None]
